FAERS Safety Report 21986146 (Version 1)
Quarter: 2023Q1

REPORT INFORMATION
  Report Type: Spontaneous
  Country: CN (occurrence: None)
  Receive Date: 20230213
  Receipt Date: 20230213
  Transmission Date: 20230418
  Serious: Yes (Other)
  Sender: FDA-Public Use
  Company Number: CN-ROCHE-3280870

PATIENT
  Age: 61 Year
  Sex: Female

DRUGS (6)
  1. HERCEPTIN [Suspect]
     Active Substance: TRASTUZUMAB
     Indication: Invasive ductal breast carcinoma
     Dosage: 30-JUL-2021, 20-AUG-2021, 10-SEP-2021, 1-OCT-2021, 22-OCT-2021, 12-NOV-2021
     Route: 065
  2. PERJETA [Suspect]
     Active Substance: PERTUZUMAB
     Indication: Invasive ductal breast carcinoma
     Dosage: 30-JUL-2021, 20-AUG-2021, 10-SEP-2021, 1-OCT-2021, 22-OCT-2021, 12-NOV-2021
     Route: 065
  3. KADCYLA [Suspect]
     Active Substance: ADO-TRASTUZUMAB EMTANSINE
     Indication: Invasive ductal breast carcinoma
     Dosage: 25-DEC-2021
     Route: 065
  4. PACLITAXEL [Concomitant]
     Active Substance: PACLITAXEL
     Indication: Invasive ductal breast carcinoma
     Dosage: 30-JUL-2021, 20-AUG-2021, 10-SEP-2021, 1-OCT-2021, 22-OCT-2021, 12-NOV-2021
  5. LETROZOLE [Concomitant]
     Active Substance: LETROZOLE
     Dates: start: 2021
  6. THROMBOPOIETIN [Concomitant]
     Active Substance: THROMBOPOIETIN
     Dates: start: 202207, end: 20220908

REACTIONS (4)
  - Jugular vein thrombosis [Unknown]
  - Gingival bleeding [Unknown]
  - Epistaxis [Unknown]
  - Platelet count decreased [Recovered/Resolved]

NARRATIVE: CASE EVENT DATE: 20220422
